FAERS Safety Report 8865792 (Version 2)
Quarter: 2012Q4

REPORT INFORMATION
  Report Type: 
  Country: AU (occurrence: AU)
  Receive Date: 20121024
  Receipt Date: 20121113
  Transmission Date: 20130627
  Serious: Yes (Hospitalization, Other)
  Sender: FDA-Public Use
  Company Number: AU-AMGEN-AUSSP2012067601

PATIENT
  Age: 31 Year
  Sex: Female

DRUGS (4)
  1. NEULASTA [Suspect]
     Indication: CHEMOTHERAPY
  2. TAXOTERE [Concomitant]
     Indication: BREAST CANCER
  3. CARBOPLATIN [Concomitant]
     Indication: BREAST CANCER
  4. TRASTUZUMAB [Concomitant]
     Indication: BREAST CANCER

REACTIONS (1)
  - Febrile neutropenia [Recovered/Resolved]
